FAERS Safety Report 7350770-8 (Version None)
Quarter: 2011Q1

REPORT INFORMATION
  Report Type: 
  Country: None (occurrence: None)
  Receive Date: 20110314
  Receipt Date: 20110304
  Transmission Date: 20110831
  Serious: Yes (Other)
  Sender: FDA-Public Use
  Company Number: CH-JNJFOC-20110303418

PATIENT
  Age: 15 Day
  Sex: Female

DRUGS (2)
  1. MICONAZOLE [Suspect]
     Route: 048
  2. MICONAZOLE [Suspect]
     Indication: ORAL FUNGAL INFECTION
     Route: 048

REACTIONS (6)
  - CYANOSIS [None]
  - DRUG PRESCRIBING ERROR [None]
  - REGURGITATION [None]
  - STRIDOR [None]
  - APNOEA [None]
  - HYPOTONIA [None]
